FAERS Safety Report 5529471-4 (Version None)
Quarter: 2007Q4

REPORT INFORMATION
  Report Type: 
  Country: None (occurrence: None)
  Receive Date: 20071129
  Receipt Date: 20071115
  Transmission Date: 20080405
  Serious: Yes (Other)
  Sender: FDA-Public Use
  Company Number: FI-RANBAXY-2007RR-11495

PATIENT

DRUGS (1)
  1. CIPROFLOXACIN RANBAXY 500 MG TABLETIT [Suspect]
     Dosage: 500 MG, QD

REACTIONS (2)
  - RESTLESSNESS [None]
  - SUICIDAL BEHAVIOUR [None]
